FAERS Safety Report 18221948 (Version 5)
Quarter: 2021Q1

REPORT INFORMATION
  Report Type: Spontaneous
  Country: US (occurrence: US)
  Receive Date: 20200902
  Receipt Date: 20210315
  Transmission Date: 20210419
  Serious: Yes (Hospitalization, Other)
  Sender: FDA-Public Use
  Company Number: US-GILEAD-2020-0492762

PATIENT
  Age: 41 Year
  Sex: Male

DRUGS (2)
  1. VIREAD [Suspect]
     Active Substance: TENOFOVIR DISOPROXIL FUMARATE
     Indication: HEPATITIS B
     Dosage: UNK
     Route: 048
     Dates: start: 20190120, end: 20200607
  2. VIREAD [Suspect]
     Active Substance: TENOFOVIR DISOPROXIL FUMARATE
     Dosage: UNK
     Route: 048
     Dates: start: 20190220, end: 20200607

REACTIONS (7)
  - Anhedonia [Unknown]
  - Chronic kidney disease [Unknown]
  - Acute kidney injury [Not Recovered/Not Resolved]
  - Emotional distress [Unknown]
  - Pain [Unknown]
  - Renal failure [Unknown]
  - Anxiety [Unknown]

NARRATIVE: CASE EVENT DATE: 20200607
